FAERS Safety Report 8852933 (Version 1)
Quarter: 2012Q4

REPORT INFORMATION
  Report Type: 
  Country: FR (occurrence: FR)
  Receive Date: 20121022
  Receipt Date: 20121022
  Transmission Date: 20130627
  Serious: Yes (Death)
  Sender: FDA-Public Use
  Company Number: FR-BAXTER-2012BAX020777

PATIENT
  Age: 62 Year
  Sex: Male

DRUGS (5)
  1. ENDOXAN 2000 MG, LYOPHILISAT POUR SOLUTION INJECTABLE [Suspect]
     Indication: LYMPHOMA
  2. ETOPOSIDE [Suspect]
     Indication: LYMPHOMA
  3. ADRIAMYCIN [Suspect]
     Indication: LYMPHOMA
  4. PREDNISONE [Suspect]
     Indication: LYMPHOMA
  5. RITUXIMAB [Suspect]
     Indication: LYMPHOMA

REACTIONS (1)
  - Hodgkin^s disease [Fatal]
